FAERS Safety Report 13499186 (Version 1)
Quarter: 2017Q2

REPORT INFORMATION
  Report Type: Spontaneous
  Country: NL (occurrence: NL)
  Receive Date: 20170501
  Receipt Date: 20170501
  Transmission Date: 20170830
  Serious: Yes (Death)
  Sender: FDA-Public Use
  Company Number: NL-PFIZER INC-2017177343

PATIENT
  Age: 10 Day

DRUGS (1)
  1. ALPROSTADIL. [Suspect]
     Active Substance: ALPROSTADIL
     Indication: PATENT DUCTUS ARTERIOSUS
     Dosage: 0.1 UG/KG, UNK (0.1UG/KG PER MIN OVER PERIODS RANGING FROM 10 HOURS TO 3 DAYS)
     Route: 041

REACTIONS (1)
  - Angiopathy [Fatal]
